FAERS Safety Report 5319778-8 (Version None)
Quarter: 2007Q1

REPORT INFORMATION
  Report Type: 
  Country: None (occurrence: None)
  Receive Date: 20070201
  Receipt Date: 20060327
  Transmission Date: 20070707
  Serious: Yes (Other)
  Sender: FDA-Public Use
  Company Number: 2006027549

PATIENT
  Age: 53 Year
  Sex: Female
  Weight: 58.9676 kg

DRUGS (3)
  1. AROMASIN [Suspect]
     Indication: BREAST CANCER
     Dosage: 25 MG (25 MG, 1 IN 1 D), ORAL
     Route: 048
     Dates: start: 20051201, end: 20060222
  2. TAXOL [Suspect]
     Indication: BREAST CANCER
     Dosage: INTRAVENOUS
     Route: 042
     Dates: start: 20060222
  3. CHEMOTHERAPY NOS (CHEMOTHERAPY NOS) [Suspect]
     Indication: BREAST CANCER
     Dosage: INTRAVENOUS
     Route: 042
     Dates: start: 20060222

REACTIONS (2)
  - DISEASE PROGRESSION [None]
  - WEIGHT INCREASED [None]
